FAERS Safety Report 25812536 (Version 3)
Quarter: 2025Q4

REPORT INFORMATION
  Report Type: Spontaneous
  Country: ZA (occurrence: ZA)
  Receive Date: 20250917
  Receipt Date: 20251014
  Transmission Date: 20260118
  Serious: Yes (Other)
  Sender: ACCORD
  Company Number: ZA-Accord-504569

PATIENT
  Age: 45 Year
  Sex: Female
  Weight: 93.7 kg

DRUGS (2)
  1. OXALIPLATIN [Suspect]
     Active Substance: OXALIPLATIN
     Indication: Chemotherapy
     Dosage: STRENGTH: 50 MG
     Route: 042
     Dates: start: 20250902, end: 20250902
  2. OXALIPLATIN [Suspect]
     Active Substance: OXALIPLATIN
     Indication: Chemotherapy
     Dosage: STRENGTH: 100 MG
     Route: 042
     Dates: start: 20250902, end: 20250902

REACTIONS (2)
  - Feeling hot [Recovered/Resolved]
  - Cold sweat [Recovered/Resolved]

NARRATIVE: CASE EVENT DATE: 20250902
